FAERS Safety Report 21221445 (Version 1)
Quarter: 2022Q3

REPORT INFORMATION
  Report Type: Spontaneous
  Country: US (occurrence: None)
  Receive Date: 20220816
  Receipt Date: 20220816
  Transmission Date: 20221026
  Serious: No
  Sender: FDA-Public Use
  Company Number: None

PATIENT
  Age: 60 Year
  Sex: Female
  Weight: 81.45 kg

DRUGS (4)
  1. ATORVASTATIN [Suspect]
     Active Substance: ATORVASTATIN
     Indication: Blood pressure increased
     Dosage: OTHER QUANTITY : 1 TABLET(S);?FREQUENCY : DAILY;?
     Route: 048
     Dates: start: 20220103, end: 20220813
  2. METOPROLOL [Concomitant]
     Active Substance: METOPROLOL
  3. KEPPRA [Concomitant]
     Active Substance: LEVETIRACETAM
  4. LOSARTAN [Concomitant]
     Active Substance: LOSARTAN

REACTIONS (3)
  - Confusional state [None]
  - Amnesia [None]
  - Pain in extremity [None]

NARRATIVE: CASE EVENT DATE: 20220630
